FAERS Safety Report 4888707-3 (Version None)
Quarter: 2005Q4

REPORT INFORMATION
  Report Type: 
  Country: None (occurrence: None)
  Receive Date: 20051215
  Receipt Date: 20050513
  Transmission Date: 20060501
  Serious: Yes (Hospitalization)
  Sender: FDA-Public Use
  Company Number: 2005075464

PATIENT
  Age: 60 Year
  Sex: Female
  Weight: 90.7194 kg

DRUGS (14)
  1. BEXTRA [Suspect]
     Indication: ILL-DEFINED DISORDER
     Dosage: ORAL
     Route: 048
  2. PROCRIT [Concomitant]
  3. GLUCOVANCE [Concomitant]
  4. STARLIX [Concomitant]
  5. ACTOS [Concomitant]
  6. NEXIUM [Concomitant]
  7. PRILOSEC [Concomitant]
  8. PRINIVIL [Concomitant]
  9. NITROGLYCERIN [Concomitant]
  10. NEURONTIN [Concomitant]
  11. CHROMAGEN (ASCORBIC ACID, CYANOCOBALAMIN, FERROUS FUMARATE, STOMACH DE [Concomitant]
  12. ALLEGRA [Concomitant]
  13. FUROSEMIDE [Concomitant]
  14. NADOLOL [Concomitant]

REACTIONS (5)
  - BODY HEIGHT DECREASED [None]
  - CELLULITIS [None]
  - RASH MACULAR [None]
  - SKIN LESION [None]
  - STAPHYLOCOCCAL INFECTION [None]
